FAERS Safety Report 9767602 (Version 2)
Quarter: 2013Q4

REPORT INFORMATION
  Report Type: Spontaneous
  Country: US (occurrence: US)
  Receive Date: 20131217
  Receipt Date: 20131230
  Transmission Date: 20140711
  Serious: Yes (Hospitalization)
  Sender: FDA-Public Use
  Company Number: US-ACTELION-A-US2013-92271

PATIENT
  Age: 53 Year
  Sex: Female

DRUGS (12)
  1. OPSUMIT [Suspect]
     Indication: PULMONARY ARTERIAL HYPERTENSION
     Dosage: UNK
     Route: 048
     Dates: start: 20131114
  2. ADCIRCA [Concomitant]
  3. VITAMIN D [Concomitant]
  4. COMBIVENT [Concomitant]
  5. POTASSIUM [Concomitant]
  6. SPIRONOLACTONE [Concomitant]
  7. ALTACE [Concomitant]
  8. PREDNISONE [Concomitant]
  9. CELLCEPT [Concomitant]
  10. MAG-OX [Concomitant]
  11. LANTUS [Concomitant]
  12. NOVOLOG [Concomitant]

REACTIONS (6)
  - Pneumonia [Unknown]
  - Pulmonary oedema [Recovering/Resolving]
  - Pericardial effusion [Recovering/Resolving]
  - Dyspnoea exertional [Recovering/Resolving]
  - Fluid overload [Recovering/Resolving]
  - Condition aggravated [Recovering/Resolving]
